FAERS Safety Report 7138139-2 (Version None)
Quarter: 2010Q4

REPORT INFORMATION
  Report Type: 
  Country: None (occurrence: None)
  Receive Date: 20101103
  Receipt Date: 20091117
  Transmission Date: 20110411
  Serious: Yes (Other)
  Sender: FDA-Public Use
  Company Number: US-WYE-H12194909

PATIENT
  Age: 57 Year
  Sex: Male

DRUGS (1)
  1. EFFEXOR XR [Suspect]
     Indication: BIPOLAR I DISORDER
     Dosage: ORAL
     Route: 048
     Dates: start: 20010901

REACTIONS (3)
  - CHEST PAIN [None]
  - HEPATIC ENZYME INCREASED [None]
  - HYPOAESTHESIA [None]
